FAERS Safety Report 4761908-0 (Version None)
Quarter: 2005Q3

REPORT INFORMATION
  Report Type: 
  Country: None (occurrence: None)
  Receive Date: 20050831
  Receipt Date: 20050111
  Transmission Date: 20060218
  Serious: Yes (Other)
  Sender: FDA-Public Use
  Company Number: 2005010815

PATIENT
  Age: 31 Year
  Sex: Female
  Weight: 61.2356 kg

DRUGS (1)
  1. DETROL LA [Suspect]
     Indication: POLLAKIURIA
     Dosage: 4 MG (4 MG, QD), ORAL
     Route: 048
     Dates: start: 20041220

REACTIONS (3)
  - CHEST DISCOMFORT [None]
  - STRESS [None]
  - TACHYCARDIA [None]
